FAERS Safety Report 13256786 (Version 1)
Quarter: 2017Q1

REPORT INFORMATION
  Report Type: Spontaneous
  Country: US (occurrence: US)
  Receive Date: 20170221
  Receipt Date: 20170221
  Transmission Date: 20170428
  Serious: No
  Sender: FDA-Public Use
  Company Number: US-ELI_LILLY_AND_COMPANY-US201607006062

PATIENT
  Sex: Female

DRUGS (10)
  1. CYMBALTA [Suspect]
     Active Substance: DULOXETINE HYDROCHLORIDE
     Dosage: 50 MG, QD
     Route: 065
  2. PROZAC [Concomitant]
     Active Substance: FLUOXETINE HYDROCHLORIDE
     Indication: PRODUCT USED FOR UNKNOWN INDICATION
     Dosage: 10 MG, QD
     Route: 065
     Dates: start: 201606
  3. CYMBALTA [Suspect]
     Active Substance: DULOXETINE HYDROCHLORIDE
     Dosage: 30 MG, QD
     Route: 065
  4. VYVANSE [Concomitant]
     Active Substance: LISDEXAMFETAMINE DIMESYLATE
     Dosage: 30 MG, EACH MORNING
     Route: 065
  5. CYMBALTA [Suspect]
     Active Substance: DULOXETINE HYDROCHLORIDE
     Indication: PRODUCT USED FOR UNKNOWN INDICATION
     Dosage: UNK, UNKNOWN
     Route: 065
  6. VYVANSE [Concomitant]
     Active Substance: LISDEXAMFETAMINE DIMESYLATE
     Indication: PRODUCT USED FOR UNKNOWN INDICATION
     Dosage: UNK, UNKNOWN
     Route: 065
  7. BENADRYL [Concomitant]
     Active Substance: DIPHENHYDRAMINE HYDROCHLORIDE
     Indication: SLEEP DISORDER
     Dosage: 50 MG, OTHER
     Route: 065
  8. CYMBALTA [Suspect]
     Active Substance: DULOXETINE HYDROCHLORIDE
     Dosage: 15 MG, QD
     Route: 065
  9. CYMBALTA [Suspect]
     Active Substance: DULOXETINE HYDROCHLORIDE
     Dosage: 1 DF, QD
     Route: 065
  10. KLONOPIN [Concomitant]
     Active Substance: CLONAZEPAM
     Indication: PRODUCT USED FOR UNKNOWN INDICATION
     Dosage: UNK, UNKNOWN
     Route: 065

REACTIONS (26)
  - Dysphoria [Unknown]
  - Muscle spasms [Unknown]
  - Muscle twitching [Unknown]
  - Irritability [Unknown]
  - Night sweats [Unknown]
  - Drug withdrawal syndrome [Unknown]
  - Nausea [Unknown]
  - Insomnia [Unknown]
  - Hyperhidrosis [Unknown]
  - Memory impairment [Unknown]
  - Weight increased [Unknown]
  - Dizziness [Unknown]
  - Wrong technique in product usage process [Unknown]
  - Sleep disorder [Unknown]
  - Paraesthesia [Unknown]
  - Tremor [Unknown]
  - Vertigo [Unknown]
  - Tinnitus [Unknown]
  - Anger [Unknown]
  - Headache [Unknown]
  - Tension [Unknown]
  - Affect lability [Unknown]
  - Disturbance in attention [Unknown]
  - Pain [Unknown]
  - Hypoaesthesia [Unknown]
  - Fatigue [Unknown]
